FAERS Safety Report 5509621-6 (Version None)
Quarter: 2007Q4

REPORT INFORMATION
  Report Type: 
  Country: None (occurrence: None)
  Receive Date: 20071108
  Receipt Date: 20071030
  Transmission Date: 20080405
  Serious: Yes (Other)
  Sender: FDA-Public Use
  Company Number: PHBS2007JP14631

PATIENT
  Age: 9 Year
  Sex: Male

DRUGS (3)
  1. VOLTAREN [Concomitant]
     Dosage: 50 MG/DAY
  2. VOLTAREN [Concomitant]
     Dosage: 25 MG/DAY
  3. AREDIA [Suspect]
     Dosage: 30 MG, UNK
     Route: 042
     Dates: start: 20041201

REACTIONS (5)
  - FATIGUE [None]
  - OEDEMA PERIPHERAL [None]
  - OSTEOMYELITIS [None]
  - PAIN IN EXTREMITY [None]
  - PYREXIA [None]
